FAERS Safety Report 17823742 (Version 3)
Quarter: 2021Q2

REPORT INFORMATION
  Report Type: Spontaneous
  Country: US (occurrence: US)
  Receive Date: 20200526
  Receipt Date: 20210517
  Transmission Date: 20210717
  Serious: Yes (Other)
  Sender: FDA-Public Use
  Company Number: US-PFIZER INC-2020205271

PATIENT
  Age: 61 Year
  Sex: Female

DRUGS (2)
  1. IBRANCE [Suspect]
     Active Substance: PALBOCICLIB
     Dosage: 75 MG, 3 WEEKS ON THEN 14 DAYS OFF
     Dates: start: 20210427
  2. IBRANCE [Suspect]
     Active Substance: PALBOCICLIB
     Dosage: 100 MG, CYCLIC
     Dates: start: 20190605

REACTIONS (2)
  - Off label use [Unknown]
  - Neutropenia [Unknown]
